FAERS Safety Report 9230011 (Version 2)
Quarter: 2013Q4

REPORT INFORMATION
  Report Type: Spontaneous
  Country: US (occurrence: US)
  Receive Date: 20130415
  Receipt Date: 20131021
  Transmission Date: 20140711
  Serious: Yes (Other)
  Sender: FDA-Public Use
  Company Number: US-BAYER-2013-045107

PATIENT
  Age: 27 Year
  Sex: Female
  Weight: 93 kg

DRUGS (2)
  1. MIRENA [Suspect]
     Indication: CONTRACEPTION
     Dosage: 20 MCG/24HR, CONT
     Route: 015
     Dates: start: 20100614, end: 20110524
  2. AYGESTIN [Concomitant]
     Dosage: 5 MG, UNK
     Route: 048

REACTIONS (11)
  - Embedded device [None]
  - Injury [None]
  - Pain [None]
  - Device issue [None]
  - Hormone level abnormal [None]
  - Menstrual disorder [None]
  - Cyst [None]
  - Infertility female [None]
  - Adnexa uteri cyst [None]
  - Emotional distress [None]
  - Depression [None]
